FAERS Safety Report 8125835-3 (Version None)
Quarter: 2012Q1

REPORT INFORMATION
  Report Type: 
  Country: None (occurrence: None)
  Receive Date: 20120206
  Receipt Date: 20120123
  Transmission Date: 20120608
  Serious: Yes (Death, Life-Threatening, Other)
  Sender: FDA-Public Use
  Company Number: MC201200041

PATIENT
  Age: 69 Year
  Sex: Female

DRUGS (2)
  1. HEPARIN [Suspect]
     Indication: ACUTE MYOCARDIAL INFARCTION
  2. ANGIOMAX [Suspect]
     Indication: ACUTE MYOCARDIAL INFARCTION

REACTIONS (6)
  - COAGULATION TIME PROLONGED [None]
  - HAEMORRHAGE [None]
  - NAUSEA [None]
  - VOMITING [None]
  - REPERFUSION INJURY [None]
  - PULMONARY THROMBOSIS [None]
